FAERS Safety Report 12380775 (Version 1)
Quarter: 2016Q2

REPORT INFORMATION
  Report Type: Spontaneous
  Country: US (occurrence: None)
  Receive Date: 20160517
  Receipt Date: 20160517
  Transmission Date: 20160815
  Serious: Yes (Disabling)
  Sender: FDA-Public Use
  Company Number: None

PATIENT
  Age: 70 Year
  Sex: Female
  Weight: 61.24 kg

DRUGS (1)
  1. DEPAKOTE ER [Suspect]
     Active Substance: DIVALPROEX SODIUM
     Route: 048

REACTIONS (8)
  - Drug level decreased [None]
  - Hallucination [None]
  - Drug dispensing error [None]
  - Urinary tract infection [None]
  - Mental disorder [None]
  - Agitation [None]
  - Sleep attacks [None]
  - Incorrect product formulation administered [None]

NARRATIVE: CASE EVENT DATE: 20160513
